FAERS Safety Report 18710832 (Version 1)
Quarter: 2021Q1

REPORT INFORMATION
  Report Type: Report from Study
  Country: GB (occurrence: GB)
  Receive Date: 20210107
  Receipt Date: 20210107
  Transmission Date: 20210419
  Serious: Yes (Hospitalization)
  Sender: FDA-Public Use
  Company Number: GB-JNJFOC-20210106961

PATIENT
  Age: 52 Year
  Sex: Male
  Weight: 92 kg

DRUGS (8)
  1. STELARA [Suspect]
     Active Substance: USTEKINUMAB
     Indication: PSORIASIS
     Route: 058
     Dates: start: 20170825
  2. STELARA [Suspect]
     Active Substance: USTEKINUMAB
  3. CANDESARTAN. [Concomitant]
     Active Substance: CANDESARTAN
     Dates: start: 20160110
  4. NAPROXEN. [Concomitant]
     Active Substance: NAPROXEN
     Dates: start: 20180322
  5. COCODAMOL [Concomitant]
     Active Substance: ACETAMINOPHEN\CODEINE PHOSPHATE
     Dates: start: 20171201
  6. OMEPRAZOLE. [Concomitant]
     Active Substance: OMEPRAZOLE
     Dates: start: 20180322
  7. PARACETAMOL [Concomitant]
     Active Substance: ACETAMINOPHEN
     Dates: start: 20201014
  8. DIAZEPAM. [Concomitant]
     Active Substance: DIAZEPAM
     Dates: start: 20191201, end: 20200101

REACTIONS (1)
  - Gastroenteritis [Recovered/Resolved]

NARRATIVE: CASE EVENT DATE: 20201012
